FAERS Safety Report 18851782 (Version 1)
Quarter: 2021Q1

REPORT INFORMATION
  Report Type: Spontaneous
  Country: US (occurrence: US)
  Receive Date: 20210205
  Receipt Date: 20210205
  Transmission Date: 20210420
  Serious: No
  Sender: FDA-Public Use
  Company Number: None

PATIENT
  Sex: Female

DRUGS (22)
  1. PROBIOTIC [Concomitant]
     Active Substance: PROBIOTICS NOS
  2. MURO 128 [Concomitant]
     Active Substance: SODIUM CHLORIDE
  3. AMBRISENTAN 10MG TAB [Suspect]
     Active Substance: AMBRISENTAN
     Indication: PULMONARY ARTERIAL HYPERTENSION
     Route: 048
  4. LIPITOR [Concomitant]
     Active Substance: ATORVASTATIN CALCIUM
  5. CLOTRIMAZOLE. [Concomitant]
     Active Substance: CLOTRIMAZOLE
  6. VITAMIN D3 [Concomitant]
     Active Substance: CHOLECALCIFEROL
  7. COENZYME Q10 [Concomitant]
     Active Substance: DIETARY SUPPLEMENT\UBIDECARENONE
  8. SODIUM CHLORIDE. [Concomitant]
     Active Substance: SODIUM CHLORIDE
  9. ALBUTEROL. [Concomitant]
     Active Substance: ALBUTEROL
  10. BASAGLAR KWIKPEN [Concomitant]
     Active Substance: INSULIN GLARGINE
  11. SALINE NASAL SPRAY [Concomitant]
     Active Substance: SODIUM CHLORIDE
  12. APIDRA SOLOSTAR|FERRIC SULFATE | HYDRATE POTASSIUM|  METOLAZONE [Concomitant]
  13. TRIAMCINOLONE [Concomitant]
     Active Substance: TRIAMCINOLONE
  14. IPRATROPIUM BROMIDE. [Concomitant]
     Active Substance: IPRATROPIUM BROMIDE
  15. ASPIRIN 81 [Concomitant]
     Active Substance: ASPIRIN
  16. OMEGA 3 [Concomitant]
     Active Substance: OMEGA-3 FATTY ACIDS
  17. STIOLTO RESPIMAT [Concomitant]
     Active Substance: OLODATEROL HYDROCHLORIDE\TIOTROPIUM BROMIDE MONOHYDRATE
  18. DHA [Concomitant]
     Active Substance: DIETARY SUPPLEMENT
  19. QVAR REDIHALER   | APIDRA SOLOSTAR |   PROTONIX| [Concomitant]
  20. VITAMIN C [Concomitant]
     Active Substance: ASCORBIC ACID
  21. VICTOZA [Concomitant]
     Active Substance: LIRAGLUTIDE
  22. FUROSEMIDE. [Concomitant]
     Active Substance: FUROSEMIDE

REACTIONS (1)
  - Dyspnoea [None]
